FAERS Safety Report 6431723-0 (Version None)
Quarter: 2009Q4

REPORT INFORMATION
  Report Type: 
  Country: None (occurrence: None)
  Receive Date: 20091103
  Receipt Date: 20091019
  Transmission Date: 20100525
  Serious: Yes (Hospitalization)
  Sender: FDA-Public Use
  Company Number: 02100-JPN-07-0422

PATIENT
  Age: 51 Year
  Sex: Male
  Weight: 52 kg

DRUGS (1)
  1. PLETAL [Suspect]
     Indication: CEREBRAL INFARCTION
     Dosage: 81 MG, QD
     Route: 048
     Dates: start: 20051227, end: 20070710

REACTIONS (7)
  - ABDOMINAL PAIN LOWER [None]
  - ANAL ABSCESS [None]
  - ANAL FISTULA [None]
  - DIARRHOEA [None]
  - ENTERITIS INFECTIOUS [None]
  - PURULENCE [None]
  - TUMOUR HAEMORRHAGE [None]
